FAERS Safety Report 5852603-5 (Version None)
Quarter: 2008Q3

REPORT INFORMATION
  Report Type: 
  Country: None (occurrence: None)
  Receive Date: 20080821
  Receipt Date: 20080812
  Transmission Date: 20090109
  Serious: Yes (Death, Congenital Anomaly)
  Sender: FDA-Public Use
  Company Number: A0710872A

PATIENT
  Sex: Female

DRUGS (5)
  1. PAXIL [Suspect]
     Dates: start: 20020101, end: 20070401
  2. PAXIL CR [Suspect]
     Dates: start: 20020101, end: 20070401
  3. CALCIUM [Concomitant]
     Dates: start: 20050101
  4. TYLENOL [Concomitant]
     Dates: start: 20060101
  5. LORTAB [Concomitant]
     Dates: start: 20060101

REACTIONS (14)
  - ATRIAL SEPTAL DEFECT [None]
  - CARDIAC FAILURE [None]
  - CARDIAC MURMUR [None]
  - CEREBRAL DISORDER [None]
  - CONGENITAL AORTIC ATRESIA [None]
  - DRUG EXPOSURE DURING PREGNANCY [None]
  - MICROPHTHALMOS [None]
  - PATENT DUCTUS ARTERIOSUS [None]
  - RESPIRATORY FAILURE [None]
  - RIGHT VENTRICULAR HYPERTROPHY [None]
  - SEPSIS [None]
  - TALIPES [None]
  - VENTRICULAR HYPOPLASIA [None]
  - VENTRICULAR SEPTAL DEFECT [None]
